FAERS Safety Report 9669173 (Version 2)
Quarter: 2014Q1

REPORT INFORMATION
  Report Type: Spontaneous
  Country: US (occurrence: US)
  Receive Date: 20131105
  Receipt Date: 20140212
  Transmission Date: 20141002
  Serious: No
  Sender: FDA-Public Use
  Company Number: US-009507513-1311USA001415

PATIENT
  Age: 18 Year
  Sex: Female
  Weight: 53.97 kg

DRUGS (2)
  1. NEXPLANON [Suspect]
     Dosage: 1 STANDARD PACKAGE OF PF APPLICATION OF 1
     Route: 059
     Dates: start: 20131101, end: 20131101
  2. IMPLANON [Concomitant]
     Dosage: UNK
     Route: 059
     Dates: start: 20131101

REACTIONS (3)
  - Device difficult to use [Recovered/Resolved]
  - Product quality issue [Unknown]
  - No adverse event [Unknown]
